FAERS Safety Report 6548246-0 (Version None)
Quarter: 2010Q1

REPORT INFORMATION
  Report Type: 
  Country: None (occurrence: None)
  Receive Date: 20100124
  Receipt Date: 20090403
  Transmission Date: 20100710
  Serious: No
  Sender: FDA-Public Use
  Company Number: US-ALLERGAN-0904430US

PATIENT
  Age: 55 Year
  Sex: Female

DRUGS (2)
  1. RESTASIS [Suspect]
     Indication: LACRIMATION DECREASED
     Dosage: UNK, BID
     Route: 047
     Dates: start: 20090328, end: 20090328
  2. RESTASIS [Suspect]
     Dosage: UNK, UNKNOWN
     Route: 047
     Dates: start: 20090329

REACTIONS (6)
  - BLISTER [None]
  - EYE IRRITATION [None]
  - OCULAR HYPERAEMIA [None]
  - PERIORBITAL HAEMATOMA [None]
  - SKIN BURNING SENSATION [None]
  - VITREOUS FLOATERS [None]
